FAERS Safety Report 10306159 (Version 2)
Quarter: 2014Q3

REPORT INFORMATION
  Report Type: Spontaneous
  Country: JP (occurrence: None)
  Receive Date: 20140711
  Receipt Date: 20140804
  Transmission Date: 20150326
  Serious: Yes (Hospitalization)
  Sender: FDA-Public Use
  Company Number: VAL_03210_2014

PATIENT
  Age: 72 Year
  Sex: Male

DRUGS (4)
  1. CELECOX [Concomitant]
     Active Substance: CELECOXIB
  2. RINLAXER [Concomitant]
     Active Substance: CHLORPHENESIN CARBAMATE
  3. MUCOSTA [Concomitant]
     Active Substance: REBAMIPIDE
  4. PARLODEL [Suspect]
     Active Substance: BROMOCRIPTINE MESYLATE
     Indication: PARKINSON^S DISEASE
     Dosage: DF
     Route: 048

REACTIONS (2)
  - Contusion [None]
  - Fall [None]

NARRATIVE: CASE EVENT DATE: 20140529
